FAERS Safety Report 6232666-8 (Version None)
Quarter: 2009Q2

REPORT INFORMATION
  Report Type: 
  Country: None (occurrence: None)
  Receive Date: 20090617
  Receipt Date: 20090605
  Transmission Date: 20091009
  Serious: Yes (Other)
  Sender: FDA-Public Use
  Company Number: JP-PFIZER INC-2009225292

PATIENT
  Age: 24 Year

DRUGS (1)
  1. ZITHROMAC SR [Suspect]
     Indication: ACNE
     Route: 048
     Dates: start: 20090601, end: 20090601

REACTIONS (2)
  - ALTERED STATE OF CONSCIOUSNESS [None]
  - SHOCK [None]
